FAERS Safety Report 5500502-0 (Version None)
Quarter: 2007Q4

REPORT INFORMATION
  Report Type: 
  Country: None (occurrence: None)
  Receive Date: 20071029
  Receipt Date: 20071024
  Transmission Date: 20080405
  Serious: Yes (Death)
  Sender: FDA-Public Use
  Company Number: SE-BAYER-200716247GDS

PATIENT
  Age: 22 Month
  Sex: Male

DRUGS (1)
  1. ADALAT [Suspect]
     Indication: PULMONARY HYPERTENSION
     Route: 065

REACTIONS (1)
  - CARDIAC ARREST [None]
